FAERS Safety Report 4479079-7 (Version None)
Quarter: 2004Q4

REPORT INFORMATION
  Report Type: 
  Country: None (occurrence: None)
  Receive Date: 20041015
  Receipt Date: 20040930
  Transmission Date: 20050328
  Serious: Yes (Death, Hospitalization)
  Sender: FDA-Public Use
  Company Number: 2003185511JP

PATIENT
  Age: 62 Year
  Sex: Female
  Weight: 59 kg

DRUGS (8)
  1. ZYVOX [Suspect]
     Indication: STAPHYLOCOCCAL INFECTION
     Dosage: 600 MG, BID, ORAL
     Route: 048
     Dates: start: 20030819, end: 20030823
  2. ZYVOX [Suspect]
     Indication: STAPHYLOCOCCAL INFECTION
     Dosage: 600 MG, BID, ORAL
     Route: 048
     Dates: start: 20030916, end: 20030920
  3. MS CONTIN [Concomitant]
  4. ZOLPIDEM TARTRATE [Concomitant]
  5. AMLODIPINE BESYLATE [Concomitant]
  6. TAGAMET [Concomitant]
  7. LASIX [Concomitant]
  8. TIENAM (IMIPENEM, CILASTATIN) [Concomitant]

REACTIONS (10)
  - ANOREXIA [None]
  - CONDITION AGGRAVATED [None]
  - CONSTIPATION [None]
  - DISSEMINATED INTRAVASCULAR COAGULATION [None]
  - GENERAL PHYSICAL HEALTH DETERIORATION [None]
  - HAEMORRHAGE SUBCUTANEOUS [None]
  - LUNG CANCER METASTATIC [None]
  - NAUSEA [None]
  - PLATELET COUNT DECREASED [None]
  - THERAPY NON-RESPONDER [None]
